FAERS Safety Report 5385806-7 (Version None)
Quarter: 2007Q3

REPORT INFORMATION
  Report Type: 
  Country: None (occurrence: None)
  Receive Date: 20070712
  Receipt Date: 20070706
  Transmission Date: 20080115
  Serious: Yes (Hospitalization)
  Sender: FDA-Public Use
  Company Number: DK-ELI_LILLY_AND_COMPANY-DK200703004778

PATIENT
  Age: 66 Year
  Sex: Female

DRUGS (2)
  1. OLANZAPINE [Suspect]
     Indication: DELUSIONAL DISORDER, PERSECUTORY TYPE
     Dosage: 15-20 MG, DAILY (1/D)
     Route: 048
     Dates: start: 20070108, end: 20070126
  2. OXAZEPAM [Concomitant]
     Dosage: 7.5-15 MG, DAILY (1/D)
     Route: 048
     Dates: start: 20070101, end: 20070305

REACTIONS (1)
  - HYPERSENSITIVITY [None]
